FAERS Safety Report 8806531 (Version 1)
Quarter: 2012Q4

REPORT INFORMATION
  Report Type: Spontaneous
  Country: US (occurrence: None)
  Receive Date: 20120918
  Receipt Date: 20120918
  Transmission Date: 20130627
  Serious: Yes (Other)
  Sender: FDA-Public Use
  Company Number: FK201202629

PATIENT
  Age: 79 Year
  Sex: Female
  Weight: 58.97 kg

DRUGS (4)
  1. VANCOMYCIN [Suspect]
     Indication: STAPHYLOCOCCAL INFECTION
     Route: 042
  2. MULTIVITAMINS [Concomitant]
  3. TOTAL PARENTERAL NUTRITION (TPN) [Concomitant]
  4. PREDNISONE [Concomitant]

REACTIONS (5)
  - Renal tubular necrosis [None]
  - Tubulointerstitial nephritis [None]
  - Malaise [None]
  - Fatigue [None]
  - Nephrosclerosis [None]
